FAERS Safety Report 26072147 (Version 1)
Quarter: 2025Q4

REPORT INFORMATION
  Report Type: Spontaneous
  Country: US (occurrence: None)
  Receive Date: 20251120
  Receipt Date: 20251120
  Transmission Date: 20260118
  Serious: No
  Sender: ALKERMES
  Company Number: US-ALKERMES INC.-ALK-2025-002778

PATIENT
  Age: 73 Year
  Sex: Male
  Weight: 79.365 kg

DRUGS (1)
  1. VIVITROL [Suspect]
     Active Substance: NALTREXONE
     Indication: Alcohol use disorder
     Dosage: 380 MILLIGRAM, Q4WK

REACTIONS (4)
  - Needle issue [Recovered/Resolved]
  - Wrong technique in device usage process [Recovered/Resolved]
  - Syringe issue [Recovered/Resolved]
  - Injection site discomfort [Unknown]

NARRATIVE: CASE EVENT DATE: 20250911
